FAERS Safety Report 7447456-8 (Version None)
Quarter: 2011Q2

REPORT INFORMATION
  Report Type: 
  Country: None (occurrence: None)
  Receive Date: 20110429
  Receipt Date: 20110420
  Transmission Date: 20111010
  Serious: Yes (Other)
  Sender: FDA-Public Use
  Company Number: US-JNJFOC-20110410280

PATIENT
  Age: 45 Year
  Sex: Female

DRUGS (5)
  1. RISPERDAL CONSTA [Suspect]
     Indication: SCHIZOPHRENIA
     Route: 030
  2. LEXAPRO [Concomitant]
     Route: 065
  3. RISPERDAL [Suspect]
     Indication: SCHIZOPHRENIA
     Route: 048
  4. RISPERDAL CONSTA [Suspect]
     Route: 030
  5. INVEGA SUSTENNA [Suspect]
     Indication: SCHIZOPHRENIA
     Route: 030

REACTIONS (1)
  - CONVULSION [None]
